FAERS Safety Report 20807634 (Version 1)
Quarter: 2022Q2

REPORT INFORMATION
  Report Type: Spontaneous
  Country: US (occurrence: None)
  Receive Date: 20220509
  Receipt Date: 20220509
  Transmission Date: 20220721
  Serious: Yes (Hospitalization)
  Sender: FDA-Public Use
  Company Number: None

PATIENT
  Age: 43 Year
  Sex: Female
  Weight: 64 kg

DRUGS (2)
  1. PAROXETINE HYDROCHLORIDE [Suspect]
     Active Substance: PAROXETINE HYDROCHLORIDE
     Indication: Bipolar disorder
     Dosage: DAILYIN THE MORNING
     Route: 048
     Dates: start: 20211220, end: 20220112
  2. PAROXETINE HYDROCHLORIDE [Suspect]
     Active Substance: PAROXETINE HYDROCHLORIDE
     Indication: Mania
     Route: 048

REACTIONS (8)
  - Psychotic disorder [None]
  - Delusion [None]
  - Paranoia [None]
  - Impulsive behaviour [None]
  - Judgement impaired [None]
  - Mania [None]
  - Adverse drug reaction [None]
  - Hallucination [None]

NARRATIVE: CASE EVENT DATE: 20220111
